FAERS Safety Report 7587535-8 (Version None)
Quarter: 2011Q3

REPORT INFORMATION
  Report Type: 
  Country: None (occurrence: None)
  Receive Date: 20110704
  Receipt Date: 20110620
  Transmission Date: 20111222
  Serious: Yes (Hospitalization, Other)
  Sender: FDA-Public Use
  Company Number: PHHY2011JP34650

PATIENT
  Sex: Male
  Weight: 63 kg

DRUGS (30)
  1. IMATINIB MESYLATE [Suspect]
     Dosage: 600 MG, DAILY
     Route: 048
     Dates: start: 20090129, end: 20090225
  2. ONCOVIN [Concomitant]
  3. MAGNESIUM OXIDE [Concomitant]
     Dosage: 1.5 G, UNK
     Route: 048
     Dates: start: 20081108, end: 20081125
  4. ZOLPIDEM [Concomitant]
     Route: 048
     Dates: start: 20081112
  5. MAGNESIUM SULFATE [Concomitant]
     Dosage: 1000 MG, UNK
     Route: 048
     Dates: start: 20090306
  6. MAXIPIME [Concomitant]
     Dosage: 4 G, UNK
     Route: 041
     Dates: start: 20081106, end: 20081110
  7. AZUNOL                             /00317302/ [Concomitant]
     Dosage: 5 DF, UNK
     Route: 048
     Dates: start: 20081112, end: 20081217
  8. ADALAT CC [Concomitant]
     Dosage: 20 MG, UNK
     Route: 048
     Dates: start: 20081108, end: 20081118
  9. AVELOX [Concomitant]
     Indication: PROPHYLAXIS
     Dosage: 400 MG, UNK
     Route: 048
     Dates: start: 20081118, end: 20090110
  10. ITRACONAZOLE [Concomitant]
     Indication: PROPHYLAXIS
     Dosage: 20 ML, UNK
     Route: 048
     Dates: start: 20081108, end: 20090309
  11. MAGNESIUM OXIDE [Concomitant]
     Dosage: 3 G, UNK
     Route: 048
     Dates: start: 20081126, end: 20081210
  12. POLYMYXIN B SULFATE [Concomitant]
     Indication: PROPHYLAXIS
     Dosage: 3 DF, UNK
     Route: 048
     Dates: start: 20090113, end: 20090119
  13. LASIX [Concomitant]
     Dosage: 20 MG, UNK
     Route: 048
     Dates: start: 20090228
  14. SULFAMETHOXAZOLE [Concomitant]
     Indication: PROPHYLAXIS
     Dosage: 1 DF, UNK
     Route: 048
     Dates: start: 20081108
  15. SELBEX [Concomitant]
     Dosage: 50 MG, UNK
     Route: 048
     Dates: start: 20081201, end: 20081216
  16. OZEX [Concomitant]
     Indication: PROPHYLAXIS
     Dosage: 450 MG, UNK
     Route: 048
     Dates: start: 20090305
  17. TIENAM [Concomitant]
     Dosage: 2 G, UNK
     Route: 041
     Dates: start: 20081110, end: 20091117
  18. PLATELETS [Concomitant]
     Route: 041
     Dates: start: 20081106, end: 20090125
  19. LAXOBERON [Concomitant]
     Route: 048
     Dates: start: 20090305
  20. STROCAIN [Concomitant]
     Dosage: 15 MG, UNK
     Route: 048
     Dates: start: 20081116, end: 20081216
  21. FAMOTIDINE [Concomitant]
     Dosage: 40 MG, UNK
     Route: 048
     Dates: start: 20090116
  22. FIRSTCIN [Concomitant]
     Dosage: 4 G, UNK
     Route: 041
     Dates: start: 20090119, end: 20090126
  23. PURSENNID [Concomitant]
     Dosage: 24 MG, UNK
     Route: 048
     Dates: start: 20081108, end: 20090126
  24. LANSOPRAZOLE [Concomitant]
     Dosage: 30 MG, UNK
     Route: 048
     Dates: start: 20081108, end: 20090115
  25. RED CELLS MAP [Concomitant]
     Dosage: 2 IU, UNK
     Route: 041
     Dates: start: 20081122
  26. IMATINIB MESYLATE [Suspect]
     Indication: ACUTE LYMPHOCYTIC LEUKAEMIA
     Dosage: 600 MG, DAILY
     Route: 048
     Dates: start: 20081115, end: 20090112
  27. IMATINIB MESYLATE [Suspect]
     Dosage: 600 MG, DAILY
     Route: 048
     Dates: start: 20090228, end: 20090331
  28. ALLOPURINOL [Concomitant]
     Indication: PROPHYLAXIS
     Dosage: 300 MG, UNK
     Route: 048
     Dates: start: 20081108, end: 20081114
  29. DIFLUCAN [Concomitant]
     Indication: PROPHYLAXIS
     Dosage: 200 MG, UNK
     Route: 048
     Dates: start: 20090310
  30. ISODINE [Concomitant]
     Dosage: 30 ML, UNK
     Route: 048
     Dates: start: 20081110, end: 20090313

REACTIONS (5)
  - PLATELET COUNT DECREASED [None]
  - WHITE BLOOD CELL COUNT DECREASED [None]
  - GRAFT VERSUS HOST DISEASE [None]
  - BLOOD CREATININE INCREASED [None]
  - BLOOD UREA INCREASED [None]
